FAERS Safety Report 21280248 (Version 4)
Quarter: 2024Q2

REPORT INFORMATION
  Report Type: Other
  Country: US (occurrence: None)
  Receive Date: 20220901
  Receipt Date: 20240403
  Transmission Date: 20240715
  Serious: Yes (Hospitalization, Disabling)
  Sender: FDA-Public Use
  Company Number: US-ROCHE-3171143

PATIENT
  Age: 27 Year
  Sex: Female
  Weight: 61.29 kg

DRUGS (9)
  1. EVRYSDI [Suspect]
     Active Substance: RISDIPLAM
     Indication: Spinal muscular atrophy
     Dosage: 5MG DAILY BY MOUTH
     Route: 048
     Dates: start: 20200803
  2. TRAMADOL [Concomitant]
     Active Substance: TRAMADOL\TRAMADOL HYDROCHLORIDE
     Route: 048
  3. CYMBALTA [Concomitant]
     Active Substance: DULOXETINE HYDROCHLORIDE
     Route: 048
  4. CYMBALTA [Concomitant]
     Active Substance: DULOXETINE HYDROCHLORIDE
     Route: 048
  5. PROVERA [Concomitant]
     Active Substance: MEDROXYPROGESTERONE ACETATE
     Route: 048
  6. NEURONTIN [Concomitant]
     Active Substance: GABAPENTIN
     Route: 048
  7. COZAAR [Concomitant]
     Active Substance: LOSARTAN POTASSIUM
     Route: 048
  8. POTASSIUM CHLORIDE [Concomitant]
     Active Substance: POTASSIUM CHLORIDE
     Dosage: 20 MEQ
     Route: 048
  9. HYGROTON [Concomitant]
     Active Substance: CHLORTHALIDONE
     Route: 048

REACTIONS (3)
  - Stomatitis [Not Recovered/Not Resolved]
  - Ulcer [Not Recovered/Not Resolved]
  - Tongue ulceration [Not Recovered/Not Resolved]

NARRATIVE: CASE EVENT DATE: 20220314
